FAERS Safety Report 4269848-0 (Version None)
Quarter: 2004Q1

REPORT INFORMATION
  Report Type: 
  Country: None (occurrence: None)
  Receive Date: 20040113
  Receipt Date: 20040113
  Transmission Date: 20041129
  Serious: Yes (Hospitalization)
  Sender: FDA-Public Use
  Company Number: None

PATIENT
  Age: 76 Year
  Sex: Male

DRUGS (10)
  1. WARFARIN SODIUM [Suspect]
     Indication: THROMBOSIS
     Dosage: 7 MG QD
     Dates: start: 20030606
  2. ENOXAPARIN SODIUM [Suspect]
     Indication: THROMBOSIS
     Dosage: 100 MG Q12 H
     Dates: start: 20030606
  3. ASPIRIN [Concomitant]
  4. NITROGLYCERIN [Concomitant]
  5. PLAVIX [Concomitant]
  6. ISOSORBIDE [Concomitant]
  7. LISINOPRIL [Concomitant]
  8. ZOCOR [Concomitant]
  9. ACIPHEX [Concomitant]
  10. SALSALATE [Concomitant]

REACTIONS (1)
  - BLOOD BLISTER [None]
